FAERS Safety Report 7543702-0 (Version None)
Quarter: 2011Q2

REPORT INFORMATION
  Report Type: 
  Country: None (occurrence: None)
  Receive Date: 20110613
  Receipt Date: 20040108
  Transmission Date: 20111010
  Serious: Yes (Death)
  Sender: FDA-Public Use
  Company Number: PHHO2004CA00672

PATIENT
  Sex: Male

DRUGS (1)
  1. CLOZAPINE [Suspect]
     Indication: SCHIZOPHRENIA
     Route: 048
     Dates: start: 19940201

REACTIONS (1)
  - LUNG NEOPLASM MALIGNANT [None]
